FAERS Safety Report 7929627-7 (Version None)
Quarter: 2011Q4

REPORT INFORMATION
  Report Type: 
  Country: None (occurrence: None)
  Receive Date: 20111121
  Receipt Date: 20111110
  Transmission Date: 20120403
  Serious: Yes (Other)
  Sender: FDA-Public Use
  Company Number: CA-JNJFOC-20111105089

PATIENT
  Sex: Male
  Weight: 105.2 kg

DRUGS (9)
  1. CRESTOR [Concomitant]
     Route: 048
  2. ALENDRONATE SODIUM [Concomitant]
     Route: 048
  3. REMICADE [Suspect]
     Indication: RHEUMATOID ARTHRITIS
     Route: 042
  4. MESALAMINE [Concomitant]
     Route: 048
  5. HYDROCHLOROTHIAZIDE [Concomitant]
     Route: 048
  6. AMLODIPINE [Concomitant]
     Route: 048
  7. REMICADE [Suspect]
     Dosage: ^LOADING DOSE #2^
     Route: 042
     Dates: start: 20111110
  8. PREDNISONE TAB [Concomitant]
     Route: 048
  9. METOPROLOL TARTRATE [Concomitant]
     Route: 048

REACTIONS (8)
  - SPEECH DISORDER [None]
  - INFUSION RELATED REACTION [None]
  - DYSPNOEA [None]
  - HYPERTENSION [None]
  - HEART RATE INCREASED [None]
  - RESPIRATORY RATE INCREASED [None]
  - CHEST DISCOMFORT [None]
  - TREMOR [None]
